FAERS Safety Report 23811317 (Version 2)
Quarter: 2024Q2

REPORT INFORMATION
  Report Type: Spontaneous
  Country: GB (occurrence: GB)
  Receive Date: 20240502
  Receipt Date: 20240521
  Transmission Date: 20240715
  Serious: Yes (Hospitalization, Other)
  Sender: FDA-Public Use
  Company Number: GB-CELLTRION INC.-2024GB005121

PATIENT

DRUGS (2)
  1. YUFLYMA [Suspect]
     Active Substance: ADALIMUMAB-AATY
     Indication: Psoriasis
     Dosage: 40 MG, EVERY 2 WEEKS
     Route: 058
  2. YUFLYMA [Suspect]
     Active Substance: ADALIMUMAB-AATY
     Dosage: YUFLYMA 40MG EVERY 2 WEEKS
     Route: 058

REACTIONS (6)
  - Candida infection [Unknown]
  - Chest pain [Unknown]
  - Lower respiratory tract infection [Unknown]
  - Rib fracture [Unknown]
  - Fall [Unknown]
  - Intentional dose omission [Unknown]
